FAERS Safety Report 6292534-2 (Version None)
Quarter: 2009Q3

REPORT INFORMATION
  Report Type: 
  Country: None (occurrence: None)
  Receive Date: 20090731
  Receipt Date: 20090727
  Transmission Date: 20100115
  Serious: Yes (Other)
  Sender: FDA-Public Use
  Company Number: FR-ASTRAZENECA-2009SE05449

PATIENT
  Age: 66 Year
  Sex: Female

DRUGS (2)
  1. ARIMIDEX [Suspect]
     Indication: BREAST CANCER
     Route: 048
     Dates: start: 20061103, end: 20080426
  2. ARIMIDEX [Suspect]
     Route: 048
     Dates: start: 20090401

REACTIONS (3)
  - ALOPECIA [None]
  - DEPRESSION [None]
  - DRY EYE [None]
